FAERS Safety Report 5024457-0 (Version None)
Quarter: 2006Q2

REPORT INFORMATION
  Report Type: 
  Country: None (occurrence: None)
  Receive Date: 20060613
  Receipt Date: 20060329
  Transmission Date: 20061013
  Serious: Yes (Hospitalization)
  Sender: FDA-Public Use
  Company Number: SE-AVENTIS-200613203GDDC

PATIENT
  Sex: Female

DRUGS (3)
  1. DESMOSPRAY [Suspect]
     Indication: NOCTURIA
  2. CITALOPRAM HYDROBROMIDE [Concomitant]
     Indication: DEPRESSION
     Dates: start: 20060216
  3. ZOPICLONE [Concomitant]

REACTIONS (4)
  - DYSURIA [None]
  - NAUSEA [None]
  - SWELLING FACE [None]
  - URINE ANALYSIS ABNORMAL [None]
